FAERS Safety Report 14954272 (Version 1)
Quarter: 2018Q2

REPORT INFORMATION
  Report Type: Spontaneous
  Country: US (occurrence: US)
  Receive Date: 20180509
  Receipt Date: 20180509
  Transmission Date: 20180711
  Serious: Yes (Hospitalization)
  Sender: FDA-Public Use
  Company Number: None

PATIENT
  Age: 55 Year
  Sex: Female
  Weight: 69.5 kg

DRUGS (5)
  1. CYCLOPHOSPHAMIDE. [Suspect]
     Active Substance: CYCLOPHOSPHAMIDE
     Dates: end: 20180402
  2. MERCAPTOPURINE. [Suspect]
     Active Substance: MERCAPTOPURINE
     Dates: end: 20180417
  3. CYTARABINE. [Suspect]
     Active Substance: CYTARABINE
     Dates: end: 20180412
  4. ONCASPAR [Suspect]
     Active Substance: PEGASPARGASE
     Dates: end: 20180312
  5. METHOTREXATE. [Suspect]
     Active Substance: METHOTREXATE
     Dates: end: 20180319

REACTIONS (10)
  - Pancytopenia [None]
  - Haematochezia [None]
  - Clostridium test positive [None]
  - Epistaxis [None]
  - Dizziness [None]
  - Dyspnoea [None]
  - Nausea [None]
  - Proctalgia [None]
  - Diarrhoea [None]
  - Platelet count decreased [None]

NARRATIVE: CASE EVENT DATE: 20180423
